FAERS Safety Report 8974973 (Version 2)
Quarter: 2013Q4

REPORT INFORMATION
  Report Type: Report from Study
  Country: NL (occurrence: NL)
  Receive Date: 20121219
  Receipt Date: 20131115
  Transmission Date: 20140711
  Serious: Yes (Death)
  Sender: FDA-Public Use
  Company Number: PHHY2012NL116882

PATIENT
  Age: 72 Year
  Sex: Male
  Weight: 90 kg

DRUGS (7)
  1. ZOMETA [Suspect]
     Indication: METASTASES TO BONE
     Dosage: 4 MG/100 ML,ONCE PER 21 DAY
     Route: 042
  2. ZOMETA [Suspect]
     Dosage: 4 MG/100 ML,ONCE PER 21 DAY
     Route: 042
     Dates: start: 20120326
  3. ZOMETA [Suspect]
     Dosage: 4 MG/100 ML,ONCE PER 21 DAY
     Route: 042
     Dates: start: 20121126
  4. PREDNISON [Concomitant]
     Dosage: 5, BID
  5. DUROGESIC [Concomitant]
     Dosage: 25 UG, QD
  6. LANOXIN [Concomitant]
     Dosage: 0.012 UKN, QD
  7. ENALAPRIL [Concomitant]
     Dosage: 5, QD

REACTIONS (3)
  - Prostate cancer metastatic [Fatal]
  - Metastases to bone [Fatal]
  - Malignant neoplasm progression [Fatal]
